FAERS Safety Report 9494445 (Version 3)
Quarter: 2014Q1

REPORT INFORMATION
  Report Type: Spontaneous
  Country: JP (occurrence: JP)
  Receive Date: 20130903
  Receipt Date: 20140205
  Transmission Date: 20141002
  Serious: Yes (Death, Hospitalization, Other)
  Sender: FDA-Public Use
  Company Number: PHHY2013JP093575

PATIENT
  Sex: 0

DRUGS (14)
  1. APRESOLIN [Suspect]
     Dosage: (MATERNAL DOSE: 40 MG DAILY)
     Route: 064
  2. APRESOLIN [Suspect]
     Dosage: (MATERNAL DOSE: 60 MG DAILY)
     Route: 064
  3. APRESOLIN [Suspect]
     Dosage: (MATERNAL DOSE: 90 MG DAILY)
     Route: 064
  4. APRESOLIN [Suspect]
     Dosage: (MATERNAL DOSE: 120 MG DAILY)
     Route: 064
  5. APRESOLIN [Suspect]
     Dosage: (MATERNAL DOSE: 60 MG DAILY)
     Route: 064
  6. APRESOLIN [Suspect]
     Dosage: (MATERNAL DOSE: 100UG/MIN)
     Route: 064
  7. APRESOLIN [Suspect]
     Dosage: (MATERNAL DOSE: 167UG/MIN)
     Route: 064
  8. NICARDIPINE [Suspect]
     Dosage: (MATERNAL DOSE: 1UG/KG/MIN)
     Route: 064
  9. NICARDIPINE [Suspect]
     Dosage: (MATERNAL DOSE: 0.5UG/KG/MIN)
     Route: 064
  10. METHYLDOPA [Suspect]
     Dosage: (MATERNAL DOSE: 750 MG)
     Route: 064
  11. METHYLDOPA [Suspect]
     Dosage: (MATERNAL DOSE: 1000 MG) DAILY
     Route: 064
  12. METHYLDOPA [Suspect]
     Dosage: (MATERNAL DOSE: 750 MG) DAILY
     Route: 064
  13. NIFEDIPINE [Suspect]
     Dosage: (MATERNAL DOSE: 20 MG)
     Route: 064
  14. NIFEDIPINE [Suspect]
     Dosage: (MATERNAL DOSE: 10 MG)
     Route: 064

REACTIONS (11)
  - Respiratory failure [Fatal]
  - Cardiac failure [Fatal]
  - Necrotising enterocolitis neonatal [Fatal]
  - Cyanosis central [Unknown]
  - Bradycardia [Unknown]
  - Cholestasis [Unknown]
  - Ascites [Unknown]
  - Premature baby [Unknown]
  - Foetal growth restriction [Unknown]
  - Apgar score low [Unknown]
  - Foetal exposure during pregnancy [Unknown]
